APPROVED DRUG PRODUCT: PARICALCITOL
Active Ingredient: PARICALCITOL
Strength: 0.005MG/ML (0.005MG/ML)
Dosage Form/Route: SOLUTION;INTRAVENOUS
Application: A205982 | Product #002
Applicant: EUGIA PHARMA SPECIALITIES LTD
Approved: Oct 9, 2018 | RLD: No | RS: No | Type: DISCN